FAERS Safety Report 18930021 (Version 7)
Quarter: 2022Q3

REPORT INFORMATION
  Report Type: Spontaneous
  Country: US (occurrence: US)
  Receive Date: 20210223
  Receipt Date: 20220817
  Transmission Date: 20221027
  Serious: No
  Sender: FDA-Public Use
  Company Number: US-SA-SAC20210218000566

PATIENT
  Age: 42 Year
  Sex: Female

DRUGS (7)
  1. LUMIZYME [Suspect]
     Active Substance: ALGLUCOSIDASE ALFA
     Indication: Glycogen storage disease type II
     Dosage: 2200 MG, QOW
     Route: 042
     Dates: start: 202002
  2. LUMIZYME [Suspect]
     Active Substance: ALGLUCOSIDASE ALFA
     Dosage: 2200 MG, QOW
     Route: 042
     Dates: start: 20210211
  3. LUMIZYME [Suspect]
     Active Substance: ALGLUCOSIDASE ALFA
     Dosage: 2200 MG, QOW
     Route: 042
     Dates: start: 20210224
  4. LUMIZYME [Suspect]
     Active Substance: ALGLUCOSIDASE ALFA
     Dosage: 50 MG, QOW
     Route: 042
     Dates: start: 20210312
  5. LUMIZYME [Suspect]
     Active Substance: ALGLUCOSIDASE ALFA
     Dosage: 2200 MG, QOW
     Route: 042
     Dates: start: 2021
  6. ACETAMINOPHEN [Concomitant]
     Active Substance: ACETAMINOPHEN
     Indication: Premedication
     Route: 048
  7. DIPHENHYDRAMINE [Concomitant]
     Active Substance: DIPHENHYDRAMINE
     Dosage: 50 MG
     Route: 048

REACTIONS (6)
  - Poor venous access [Unknown]
  - Skin irritation [Unknown]
  - Headache [Recovered/Resolved]
  - Pruritus [Recovered/Resolved]
  - Central venous catheterisation [Unknown]
  - Product preparation issue [Unknown]

NARRATIVE: CASE EVENT DATE: 20200101
